FAERS Safety Report 6318536-5 (Version None)
Quarter: 2009Q3

REPORT INFORMATION
  Report Type: 
  Country: None (occurrence: None)
  Receive Date: 20090821
  Receipt Date: 20090811
  Transmission Date: 20100115
  Serious: Yes (Other)
  Sender: FDA-Public Use
  Company Number: PHHY2009IT34194

PATIENT
  Sex: Female

DRUGS (2)
  1. ZOMETA [Suspect]
     Dosage: 4 MG, QMO
     Route: 042
     Dates: start: 20041201, end: 20090805
  2. FASLODEX [Suspect]
     Dosage: 250 MG/5 ML
     Route: 030
     Dates: start: 20060201, end: 20060331

REACTIONS (2)
  - JAW OPERATION [None]
  - OSTEOMYELITIS [None]
